FAERS Safety Report 4906882-9 (Version None)
Quarter: 2006Q1

REPORT INFORMATION
  Report Type: 
  Country: None (occurrence: None)
  Receive Date: 20060207
  Receipt Date: 20060123
  Transmission Date: 20060701
  Serious: Yes (Hospitalization, Other)
  Sender: FDA-Public Use
  Company Number: FR200601003817

PATIENT
  Age: 57 Year
  Sex: Female

DRUGS (1)
  1. GEMZAR [Suspect]
     Indication: PANCREATIC CARCINOMA
     Dosage: 1350 MG, OTHER, INTRAVENOUS
     Route: 042
     Dates: start: 20051114, end: 20051121

REACTIONS (7)
  - ABDOMINAL PAIN [None]
  - CHOLESTASIS [None]
  - DIARRHOEA [None]
  - HEPATIC TRAUMA [None]
  - HYPERTHERMIA [None]
  - PANCYTOPENIA [None]
  - PYREXIA [None]
